FAERS Safety Report 12719931 (Version 1)
Quarter: 2016Q3

REPORT INFORMATION
  Report Type: Spontaneous
  Country: US (occurrence: US)
  Receive Date: 20160907
  Receipt Date: 20160907
  Transmission Date: 20161109
  Serious: Yes (Other)
  Sender: FDA-Public Use
  Company Number: US-JNJFOC-20150712883

PATIENT
  Age: 42 Year
  Sex: Female

DRUGS (5)
  1. CIPROFLOXACIN. [Suspect]
     Active Substance: CIPROFLOXACIN
     Indication: PNEUMONIA
     Route: 065
     Dates: start: 201210
  2. LEVAQUIN [Suspect]
     Active Substance: LEVOFLOXACIN
     Indication: PNEUMONIA
     Route: 048
     Dates: start: 201108, end: 2011
  3. LEVAQUIN [Suspect]
     Active Substance: LEVOFLOXACIN
     Indication: PNEUMONIA
     Dosage: VARYING DOSE OF 250 MG OR 500 MG
     Route: 042
     Dates: start: 20110813, end: 20110820
  4. WARFARIN [Concomitant]
     Active Substance: WARFARIN
     Indication: THROMBOSIS
     Route: 065
     Dates: start: 2011
  5. LEVAQUIN [Suspect]
     Active Substance: LEVOFLOXACIN
     Indication: PULMONARY EMBOLISM
     Route: 048
     Dates: start: 201108, end: 2011

REACTIONS (1)
  - Neuropathy peripheral [Not Recovered/Not Resolved]

NARRATIVE: CASE EVENT DATE: 201108
